FAERS Safety Report 6902855-5 (Version None)
Quarter: 2010Q3

REPORT INFORMATION
  Report Type: 
  Country: None (occurrence: None)
  Receive Date: 20100803
  Receipt Date: 20080904
  Transmission Date: 20110219
  Serious: No
  Sender: FDA-Public Use
  Company Number: US-PFIZER INC-2008060285

PATIENT
  Sex: Female
  Weight: 54.88 kg

DRUGS (16)
  1. LYRICA [Suspect]
     Indication: FIBROMYALGIA
     Dates: start: 20080710
  2. LYRICA [Suspect]
     Indication: ARTHRITIS
  3. FLUDROCORTISONE [Concomitant]
  4. PREDNISONE [Concomitant]
  5. HYDROXYZINE [Concomitant]
  6. CARVEDILOL [Concomitant]
  7. HYDROXYCHLOROQUINE [Concomitant]
  8. METOCLOPRAMIDE [Concomitant]
  9. AMITRIPTYLINE HYDROCHLORIDE [Concomitant]
  10. ZETIA [Concomitant]
  11. SIMVASTATIN [Concomitant]
  12. FERROUS FUMARATE/POLYSACCHARIDE-IRON COMPLEX [Concomitant]
  13. HECTOROL [Concomitant]
  14. FOSAMAX [Concomitant]
  15. WELCHOL [Concomitant]
  16. OXYCODONE [Concomitant]

REACTIONS (2)
  - ABDOMINAL PAIN [None]
  - DIZZINESS [None]
